FAERS Safety Report 4896005-7 (Version None)
Quarter: 2006Q1

REPORT INFORMATION
  Report Type: 
  Country: None (occurrence: None)
  Receive Date: 20060126
  Receipt Date: 20060123
  Transmission Date: 20060701
  Serious: Yes (Other)
  Sender: FDA-Public Use
  Company Number: 200513830BCC

PATIENT
  Age: 69 Year
  Sex: Female
  Weight: 55.7924 kg

DRUGS (12)
  1. ALEVE (CAPLET) [Suspect]
     Indication: COUGH
     Dosage: SEE IMAGE
     Route: 048
     Dates: start: 20050401
  2. ALEVE (CAPLET) [Suspect]
     Indication: DYSPHONIA
     Dosage: SEE IMAGE
     Route: 048
     Dates: start: 20050401
  3. ALEVE (CAPLET) [Suspect]
     Indication: INFLAMMATION
     Dosage: SEE IMAGE
     Route: 048
     Dates: start: 20050401
  4. ALEVE (CAPLET) [Suspect]
     Indication: COUGH
     Dosage: SEE IMAGE
     Route: 048
     Dates: start: 20050913
  5. ALEVE (CAPLET) [Suspect]
     Indication: DYSPHONIA
     Dosage: SEE IMAGE
     Route: 048
     Dates: start: 20050913
  6. ALEVE (CAPLET) [Suspect]
     Indication: INFLAMMATION
     Dosage: SEE IMAGE
     Route: 048
     Dates: start: 20050913
  7. ACCOLATE [Concomitant]
  8. ZYRTEC [Concomitant]
  9. GLUCOPHAGE [Concomitant]
  10. ADVENT [Concomitant]
  11. ACYCLOVIR [Concomitant]
  12. PROPOXY [Concomitant]

REACTIONS (7)
  - ARTHROPOD BITE [None]
  - ASTHENIA [None]
  - BLOOD GLUCOSE INCREASED [None]
  - BLOOD PRESSURE INCREASED [None]
  - DIARRHOEA [None]
  - NAUSEA [None]
  - SKIN DISORDER [None]
